FAERS Safety Report 4588064-6 (Version None)
Quarter: 2005Q1

REPORT INFORMATION
  Report Type: 
  Country: None (occurrence: None)
  Receive Date: 20050216
  Receipt Date: 20050131
  Transmission Date: 20050727
  Serious: Yes (Hospitalization)
  Sender: FDA-Public Use
  Company Number: AU_050108319

PATIENT
  Age: 45 Year
  Sex: Male

DRUGS (4)
  1. OLANZAPINE [Suspect]
     Indication: ADJUSTMENT DISORDER WITH MIXED ANXIETY AND DEPRESSED MOOD
     Dosage: 30 MG
     Dates: start: 20040101
  2. PARACETAMOL [Concomitant]
  3. METHADONE HCL [Concomitant]
  4. CLONAZEPAM [Concomitant]

REACTIONS (5)
  - ADJUSTMENT DISORDER WITH MIXED ANXIETY AND DEPRESSED MOOD [None]
  - ALCOHOL USE [None]
  - DELIRIUM [None]
  - HEPATIC ENCEPHALOPATHY [None]
  - TOOTHACHE [None]
